FAERS Safety Report 21748885 (Version 1)
Quarter: 2022Q4

REPORT INFORMATION
  Report Type: Spontaneous
  Country: CZ (occurrence: CZ)
  Receive Date: 20221219
  Receipt Date: 20221219
  Transmission Date: 20230113
  Serious: Yes (Death)
  Sender: FDA-Public Use
  Company Number: CZ-GRINDPROD-2022002195

PATIENT
  Age: 50 Year
  Sex: Male
  Weight: 98 kg

DRUGS (4)
  1. FENTANYL [Suspect]
     Active Substance: FENTANYL
     Indication: Product used for unknown indication
     Dosage: 100 PICOGRAM, 100 PICOGRAMS PER HOUR
     Route: 062
     Dates: start: 2022, end: 2022
  2. MORPHINE HYDROCHLORIDE [Suspect]
     Active Substance: MORPHINE HYDROCHLORIDE
     Indication: Product used for unknown indication
     Dosage: 10 MILLIGRAM, AT NIGHT
     Route: 058
     Dates: start: 20220312, end: 20220312
  3. MORPHINE HYDROCHLORIDE [Suspect]
     Active Substance: MORPHINE HYDROCHLORIDE
     Dosage: 10 MILLIGRAM
     Route: 058
     Dates: start: 20220313, end: 20220313
  4. MORPHINE HYDROCHLORIDE [Suspect]
     Active Substance: MORPHINE HYDROCHLORIDE
     Dosage: 10 MILLIGRAM
     Route: 058
     Dates: start: 20220313, end: 20220313

REACTIONS (1)
  - Pneumonia [Fatal]

NARRATIVE: CASE EVENT DATE: 20220315
